FAERS Safety Report 9708990 (Version 2)
Quarter: 2014Q1

REPORT INFORMATION
  Report Type: Spontaneous
  Country: US (occurrence: US)
  Receive Date: 20131125
  Receipt Date: 20140311
  Transmission Date: 20141002
  Serious: No
  Sender: FDA-Public Use
  Company Number: US-009507513-1311USA010599

PATIENT
  Age: 77 Year
  Sex: Female
  Weight: 72.56 kg

DRUGS (1)
  1. OXYTROL FOR WOMEN [Suspect]
     Indication: URGE INCONTINENCE
     Dosage: UNK, UNKNOWN
     Route: 062

REACTIONS (6)
  - Application site pain [Recovered/Resolved]
  - Application site swelling [Recovered/Resolved]
  - Application site erythema [Recovered/Resolved]
  - Application site pruritus [Recovered/Resolved]
  - Application site rash [Recovered/Resolved]
  - Therapeutic response decreased [Unknown]
